FAERS Safety Report 10273213 (Version 1)
Quarter: 2014Q2

REPORT INFORMATION
  Report Type: Spontaneous
  Country: US (occurrence: None)
  Receive Date: 20140630
  Receipt Date: 20140630
  Transmission Date: 20141212
  Serious: No
  Sender: FDA-Public Use
  Company Number: None

PATIENT
  Age: 79 Year
  Sex: Female
  Weight: 56.7 kg

DRUGS (13)
  1. CREON [Suspect]
     Indication: PANCREATICODUODENECTOMY
     Route: 048
     Dates: start: 20120328, end: 20140609
  2. CELEXA [Concomitant]
  3. FLONASE [Concomitant]
  4. ALLEGRA [Concomitant]
  5. ASPIRIN [Concomitant]
  6. GLUCOSAMINE CHONDROITIN W/MSM [Concomitant]
  7. CALCIUM [Concomitant]
  8. FISH OIL [Concomitant]
  9. MULTIVITAMIN [Concomitant]
  10. COQ10 [Concomitant]
  11. MELATONIN [Concomitant]
  12. ACAI BERRY [Concomitant]
  13. GINGER ROOT [Concomitant]

REACTIONS (7)
  - Stomatitis [None]
  - Lip blister [None]
  - Vulval disorder [None]
  - Constipation [None]
  - Dizziness [None]
  - Irritability [None]
  - Lip swelling [None]
